FAERS Safety Report 5096276-0 (Version None)
Quarter: 2006Q3

REPORT INFORMATION
  Report Type: 
  Country: None (occurrence: None)
  Receive Date: 20060831
  Receipt Date: 20060828
  Transmission Date: 20061208
  Serious: No
  Sender: FDA-Public Use
  Company Number: TAP2006Q01272

PATIENT
  Age: 83 Year
  Sex: Female
  Weight: 68 kg

DRUGS (2)
  1. PREVACID [Suspect]
     Indication: BARRETT'S OESOPHAGUS
     Dosage: 30 MG, 1 IN 1 D, PER ORAL
     Route: 048
     Dates: start: 20060301
  2. PEPCID [Suspect]
     Indication: BARRETT'S OESOPHAGUS
     Dosage: PER ORAL
     Route: 048

REACTIONS (3)
  - CONDITION AGGRAVATED [None]
  - EYE SWELLING [None]
  - VISION BLURRED [None]
